FAERS Safety Report 24257731 (Version 1)
Quarter: 2024Q3

REPORT INFORMATION
  Report Type: Spontaneous
  Country: KR (occurrence: KR)
  Receive Date: 20240828
  Receipt Date: 20240828
  Transmission Date: 20241017
  Serious: Yes (Other)
  Sender: GRANULES INDIA
  Company Number: KR-GRANULES-KR-2024GRALIT00374

PATIENT

DRUGS (5)
  1. PENICILLAMINE [Suspect]
     Active Substance: PENICILLAMINE
     Indication: Hepato-lenticular degeneration
     Route: 065
  2. PENICILLAMINE [Suspect]
     Active Substance: PENICILLAMINE
     Route: 065
  3. TRIENTINE [Concomitant]
     Active Substance: TRIENTINE
     Route: 065
  4. ZINC [Concomitant]
     Active Substance: ZINC
     Route: 065
  5. ZINC [Concomitant]
     Active Substance: ZINC
     Route: 065

REACTIONS (1)
  - Immune thrombocytopenia [Recovering/Resolving]
